FAERS Safety Report 7827403-7 (Version None)
Quarter: 2011Q4

REPORT INFORMATION
  Report Type: 
  Country: None (occurrence: None)
  Receive Date: 20111020
  Receipt Date: 20111011
  Transmission Date: 20120403
  Serious: Yes (Hospitalization, Other)
  Sender: FDA-Public Use
  Company Number: TW-JNJFOC-20111006920

PATIENT
  Age: 57 Year
  Sex: Male
  Weight: 60 kg

DRUGS (3)
  1. DURAGESIC-100 [Suspect]
     Dosage: 25 UG/HR + 12 UG/HR
     Route: 062
     Dates: start: 20110107, end: 20110127
  2. DURAGESIC-100 [Suspect]
     Indication: PRODUCT USED FOR UNKNOWN INDICATION
     Route: 062
     Dates: start: 20110128, end: 20110128
  3. DURAGESIC-100 [Suspect]
     Route: 062
     Dates: start: 20110205

REACTIONS (3)
  - SOMNOLENCE [None]
  - RESPIRATORY DEPRESSION [None]
  - TREATMENT NONCOMPLIANCE [None]
